FAERS Safety Report 5425700-6 (Version None)
Quarter: 2007Q3

REPORT INFORMATION
  Report Type: 
  Country: None (occurrence: None)
  Receive Date: 20070824
  Receipt Date: 20070813
  Transmission Date: 20080115
  Serious: Yes (Other)
  Sender: FDA-Public Use
  Company Number: BR-PFIZER INC-2007068801

PATIENT
  Sex: Female

DRUGS (3)
  1. XALATAN [Suspect]
     Indication: OPTIC NERVE DISORDER
     Route: 047
  2. FORMOTEROL W/BUDESONIDE [Interacting]
     Indication: BRONCHITIS CHRONIC
  3. CALCORT [Concomitant]

REACTIONS (2)
  - DRUG INTERACTION [None]
  - RESPIRATORY DISORDER [None]
